FAERS Safety Report 8343386-8 (Version None)
Quarter: 2012Q2

REPORT INFORMATION
  Report Type: 
  Country: None (occurrence: None)
  Receive Date: 20120503
  Receipt Date: 20120503
  Transmission Date: 20120825
  Serious: No
  Sender: FDA-Public Use
  Company Number: None

PATIENT
  Age: 57 Year
  Sex: Female

DRUGS (1)
  1. METHOTREXATE [Suspect]
     Dosage: 15MG QW SQ
     Route: 058
     Dates: start: 20120101, end: 20120401

REACTIONS (2)
  - FLUSHING [None]
  - ERYTHEMA [None]
